FAERS Safety Report 24839430 (Version 7)
Quarter: 2025Q1

REPORT INFORMATION
  Report Type: Spontaneous
  Country: JP (occurrence: JP)
  Receive Date: 20250114
  Receipt Date: 20250327
  Transmission Date: 20250409
  Serious: Yes (Death, Hospitalization, Other)
  Sender: GLAXOSMITHKLINE
  Company Number: JP-GSKJP-JP2024JPN135088AA

PATIENT

DRUGS (5)
  1. DAPRODUSTAT [Suspect]
     Active Substance: DAPRODUSTAT
     Indication: Nephrogenic anaemia
     Dosage: 2 MG, 1D
     Route: 048
     Dates: start: 20240925
  2. COMIRNATY (TOZINAMERAN) [Suspect]
     Active Substance: TOZINAMERAN
     Indication: COVID-19 prophylaxis
     Dosage: 0.5 ML, 1D
     Route: 030
     Dates: start: 20241118, end: 20241118
  3. MIRTAZAPINE [Concomitant]
     Active Substance: MIRTAZAPINE
     Indication: Depression
     Dosage: 15 MG, 1D
     Route: 048
     Dates: start: 20240105, end: 20240129
  4. MIRTAZAPINE [Concomitant]
     Active Substance: MIRTAZAPINE
     Dosage: 30 MG, 1D
     Route: 048
     Dates: start: 20240128, end: 20240730
  5. MIRTAZAPINE [Concomitant]
     Active Substance: MIRTAZAPINE
     Dosage: 15 MG, 1D
     Route: 048
     Dates: start: 20240731

REACTIONS (11)
  - Death [Fatal]
  - Cardiac failure congestive [Unknown]
  - Oedema peripheral [Not Recovered/Not Resolved]
  - Pleural effusion [Unknown]
  - Blood pressure increased [Recovering/Resolving]
  - Hypertension [Recovering/Resolving]
  - Weight increased [Unknown]
  - Decreased appetite [Not Recovered/Not Resolved]
  - Dyspnoea exertional [Unknown]
  - Supraventricular extrasystoles [Unknown]
  - Arteriosclerosis [Unknown]

NARRATIVE: CASE EVENT DATE: 20241023
